FAERS Safety Report 9937360 (Version 1)
Quarter: 2014Q1

REPORT INFORMATION
  Report Type: Spontaneous
  Country: US (occurrence: US)
  Receive Date: 20140303
  Receipt Date: 20140303
  Transmission Date: 20141002
  Serious: Yes (Other)
  Sender: FDA-Public Use
  Company Number: US-ROCHE-1353127

PATIENT
  Sex: Female

DRUGS (2)
  1. LUCENTIS [Suspect]
     Indication: RETINAL VEIN OCCLUSION
     Route: 050
     Dates: start: 20130826
  2. AVASTIN [Suspect]
     Indication: RETINAL VEIN OCCLUSION
     Route: 050
     Dates: end: 20130826

REACTIONS (2)
  - Endophthalmitis [Unknown]
  - Suspected transmission of an infectious agent via product [Unknown]
